FAERS Safety Report 25805077 (Version 2)
Quarter: 2025Q3

REPORT INFORMATION
  Report Type: Report from Study
  Country: US (occurrence: US)
  Receive Date: 20250916
  Receipt Date: 20250921
  Transmission Date: 20251021
  Serious: No
  Sender: SANDOZ
  Company Number: US-SANDOZ-SDZ2024US082487

PATIENT
  Sex: Male

DRUGS (2)
  1. OMNITROPE [Suspect]
     Active Substance: SOMATROPIN
     Indication: Product used for unknown indication
     Dosage: 2.4 MG, QD, STRENGTH-10
     Route: 058
  2. OMNITROPE [Suspect]
     Active Substance: SOMATROPIN
     Indication: Product used for unknown indication
     Dosage: 2.4 MG, QD, STRENGTH-10
     Route: 058

REACTIONS (4)
  - Product dose omission in error [Unknown]
  - Expired device used [Unknown]
  - Product dose omission issue [Unknown]
  - Device breakage [Unknown]
